FAERS Safety Report 13268575 (Version 1)
Quarter: 2017Q1

REPORT INFORMATION
  Report Type: Spontaneous
  Country: US (occurrence: US)
  Receive Date: 20170224
  Receipt Date: 20170224
  Transmission Date: 20170428
  Serious: No
  Sender: FDA-Public Use
  Company Number: US-ASTRAZENECA-2017SE18241

PATIENT
  Age: 640 Day
  Sex: Male
  Weight: 10.6 kg

DRUGS (4)
  1. SYNAGIS [Suspect]
     Active Substance: PALIVIZUMAB
     Indication: PREMATURE BABY
     Dosage: 1.5 ML, EVERY 28 DAYS
     Route: 030
     Dates: start: 20161107
  2. SYNAGIS [Suspect]
     Active Substance: PALIVIZUMAB
     Indication: PREMATURE BABY
     Dosage: 1.5ML UNKNOWN
     Route: 030
  3. SYNAGIS [Suspect]
     Active Substance: PALIVIZUMAB
     Indication: BRONCHOPULMONARY DYSPLASIA
     Dosage: 1.5 ML, EVERY 28 DAYS
     Route: 030
     Dates: start: 20161107
  4. SYNAGIS [Suspect]
     Active Substance: PALIVIZUMAB
     Indication: BRONCHOPULMONARY DYSPLASIA
     Dosage: 1.5ML UNKNOWN
     Route: 030

REACTIONS (2)
  - Wheezing [Unknown]
  - Cough [Unknown]

NARRATIVE: CASE EVENT DATE: 20170209
